FAERS Safety Report 10382098 (Version 2)
Quarter: 2014Q3

REPORT INFORMATION
  Report Type: Spontaneous
  Country: US (occurrence: US)
  Receive Date: 20140813
  Receipt Date: 20140924
  Transmission Date: 20150326
  Serious: Yes (Other)
  Sender: FDA-Public Use
  Company Number: US-PFIZER INC-2014222563

PATIENT
  Sex: Female

DRUGS (2)
  1. ASPIRIN. [Suspect]
     Active Substance: ASPIRIN
     Dosage: 80 MG, UNK
  2. TIKOSYN [Suspect]
     Active Substance: DOFETILIDE
     Dosage: UNK

REACTIONS (3)
  - Skin haemorrhage [Unknown]
  - Haemorrhage subcutaneous [Not Recovered/Not Resolved]
  - Impaired healing [Not Recovered/Not Resolved]
